FAERS Safety Report 7537785-1 (Version None)
Quarter: 2011Q2

REPORT INFORMATION
  Report Type: 
  Country: None (occurrence: None)
  Receive Date: 20110603
  Receipt Date: 20110525
  Transmission Date: 20111010
  Serious: Yes (Life-Threatening, Hospitalization)
  Sender: FDA-Public Use
  Company Number: EU-2011-10085

PATIENT
  Sex: Female

DRUGS (2)
  1. PLETAL [Suspect]
     Dosage: 100 MG  MILLIGRAM(S), ORAL
     Route: 048
     Dates: start: 20100801
  2. METHOTREXATE [Suspect]
     Dosage: 1 DF DOSAGE FORM, QW

REACTIONS (1)
  - PANCYTOPENIA [None]
